FAERS Safety Report 26210071 (Version 1)
Quarter: 2025Q4

REPORT INFORMATION
  Report Type: Spontaneous
  Country: US (occurrence: US)
  Receive Date: 20251229
  Receipt Date: 20251229
  Transmission Date: 20260117
  Serious: Yes (Hospitalization)
  Sender: FRESENIUS MEDICAL CARE
  Company Number: US-FMCRTG-FMC-2512-002063

PATIENT
  Age: 19 Year
  Sex: Female
  Weight: 45.5 kg

DRUGS (1)
  1. DELFLEX WITH DEXTROSE 2.5% LOW MAGNESIUM LOW CALCIUM [Suspect]
     Active Substance: CALCIUM CHLORIDE\DEXTROSE\MAGNESIUM CHLORIDE\SODIUM CHLORIDE\SODIUM LACTATE
     Indication: End stage renal disease
     Dosage: 1950 ML FOR 6 CYCLES FOR APPROXIMATELY 5 MONTHS
     Route: 033

REACTIONS (2)
  - Pericardial effusion [Unknown]
  - Treatment noncompliance [Unknown]

NARRATIVE: CASE EVENT DATE: 20251205
